FAERS Safety Report 14324017 (Version 1)
Quarter: 2017Q4

REPORT INFORMATION
  Report Type: Spontaneous
  Country: US (occurrence: US)
  Receive Date: 20171222
  Receipt Date: 20171222
  Transmission Date: 20180321
  Serious: No
  Sender: FDA-Public Use
  Company Number: None

PATIENT
  Age: 56 Year
  Sex: Male

DRUGS (1)
  1. TRACLEER [Suspect]
     Active Substance: BOSENTAN
     Indication: PULMONARY ARTERIAL HYPERTENSION
     Route: 048
     Dates: start: 20141125

REACTIONS (6)
  - Musculoskeletal chest pain [None]
  - Bronchospasm [None]
  - Cough [None]
  - Pyrexia [None]
  - Dyspnoea [None]
  - Upper respiratory tract infection [None]

NARRATIVE: CASE EVENT DATE: 20171221
